FAERS Safety Report 4450441-1 (Version None)
Quarter: 2004Q3

REPORT INFORMATION
  Report Type: 
  Country: None (occurrence: None)
  Receive Date: 20040915
  Receipt Date: 20040831
  Transmission Date: 20050211
  Serious: Yes (Death)
  Sender: FDA-Public Use
  Company Number: 208808

PATIENT
  Age: 55 Year
  Sex: Male
  Weight: 84 kg

DRUGS (6)
  1. MABTHERA(RITUXIMAB) CONC FOR SOLUTION FOR INFUSION [Suspect]
     Indication: NON-HODGKIN'S LYMPHOMA
     Dosage: 375 MG/M2, Q3W, INTRAVENOUS
     Route: 042
     Dates: start: 20040510, end: 20040813
  2. CYCLOPHOSPHAMIDE [Concomitant]
  3. VINCRISTINE [Concomitant]
  4. DOXORUBICIN HYDROCHLORIDE [Concomitant]
  5. DEXAMETHASONE [Concomitant]
  6. ETOPOSIDE [Concomitant]

REACTIONS (1)
  - DEATH [None]
